FAERS Safety Report 5965169-6 (Version None)
Quarter: 2008Q4

REPORT INFORMATION
  Report Type: 
  Country: None (occurrence: None)
  Receive Date: 20081121
  Receipt Date: 20081121
  Transmission Date: 20090506
  Serious: Yes (Other)
  Sender: FDA-Public Use
  Company Number: None

PATIENT
  Age: 65 Year
  Sex: Female
  Weight: 158.759 kg

DRUGS (2)
  1. METOPROLOL SUCCINATE EXTENDED RELEASE [Suspect]
     Indication: HYPERTENSION
     Dosage: 1 TABLET 1 X A DAY PO
     Route: 048
  2. LOTREL [Suspect]
     Indication: HYPERTENSION
     Dosage: 1 CAPSULE 1 X A DAY PO
     Route: 048

REACTIONS (3)
  - ARRHYTHMIA [None]
  - INSOMNIA [None]
  - PALPITATIONS [None]
